FAERS Safety Report 15454155 (Version 3)
Quarter: 2018Q4

REPORT INFORMATION
  Report Type: Report from Study
  Country: US (occurrence: US)
  Receive Date: 20181002
  Receipt Date: 20181114
  Transmission Date: 20190204
  Serious: Yes (Other)
  Sender: FDA-Public Use
  Company Number: US-ASTRAZENECA-2016SF21240

PATIENT
  Age: 22147 Day
  Sex: Male

DRUGS (9)
  1. BOOST [Concomitant]
     Active Substance: DIETARY SUPPLEMENT
  2. ALEVE [Concomitant]
     Active Substance: NAPROXEN SODIUM
  3. IRESSA [Suspect]
     Active Substance: GEFITINIB
     Indication: LUNG NEOPLASM MALIGNANT
     Route: 048
     Dates: start: 20180901
  4. TAGRISSO [Suspect]
     Active Substance: OSIMERTINIB
     Indication: LUNG NEOPLASM MALIGNANT
     Route: 048
     Dates: start: 20181015
  5. BENADRYL [Concomitant]
     Active Substance: DIPHENHYDRAMINE HYDROCHLORIDE
  6. IRESSA [Suspect]
     Active Substance: GEFITINIB
     Indication: LUNG NEOPLASM MALIGNANT
     Route: 048
     Dates: end: 20181015
  7. EPIPEN [Concomitant]
     Active Substance: EPINEPHRINE
  8. MULTIVITAMIN [Concomitant]
     Active Substance: VITAMINS
  9. PREDNISONE. [Concomitant]
     Active Substance: PREDNISONE

REACTIONS (10)
  - Arthritis [Unknown]
  - Nodule [Unknown]
  - Gilbert^s syndrome [Unknown]
  - Off label use [Unknown]
  - Malignant neoplasm progression [Unknown]
  - Pruritus [Unknown]
  - Rash [Unknown]
  - Hepatic enzyme increased [Unknown]
  - Diarrhoea [Unknown]
  - Product use issue [Unknown]

NARRATIVE: CASE EVENT DATE: 20181001
